FAERS Safety Report 4586702-5 (Version None)
Quarter: 2005Q1

REPORT INFORMATION
  Report Type: 
  Country: None (occurrence: None)
  Receive Date: 20050218
  Receipt Date: 20041220
  Transmission Date: 20050727
  Serious: Yes (Other)
  Sender: FDA-Public Use
  Company Number: FR-ABBOTT-04P-056-0284124-00

PATIENT
  Sex: Male
  Weight: 90 kg

DRUGS (4)
  1. LIPANTHYL TABLETS [Suspect]
     Indication: DYSLIPIDAEMIA
     Route: 048
     Dates: start: 20000420, end: 20041109
  2. DOMPERIDONE [Concomitant]
     Indication: GASTROOESOPHAGEAL REFLUX DISEASE
     Dates: start: 20040412
  3. PANTOPRAZOLE [Concomitant]
     Indication: GASTROOESOPHAGEAL REFLUX DISEASE
     Dates: start: 20040412
  4. VALACYCLOVIR HCL [Concomitant]
     Indication: HERPES VIRUS INFECTION
     Dates: start: 20010223

REACTIONS (4)
  - DYSPNOEA [None]
  - HYPOXIA [None]
  - LUNG DISORDER [None]
  - RESTRICTIVE PULMONARY DISEASE [None]
